FAERS Safety Report 13578759 (Version 1)
Quarter: 2017Q2

REPORT INFORMATION
  Report Type: Spontaneous
  Country: US (occurrence: US)
  Receive Date: 20170524
  Receipt Date: 20170524
  Transmission Date: 20170830
  Serious: No
  Sender: FDA-Public Use
  Company Number: US-JAZZ-2016-US-022751

PATIENT
  Sex: Female

DRUGS (17)
  1. ARMOUR THYROID [Concomitant]
     Active Substance: THYROID, PORCINE
  2. PROZAC [Concomitant]
     Active Substance: FLUOXETINE HYDROCHLORIDE
  3. ADDERALL [Concomitant]
     Active Substance: AMPHETAMINE ASPARTATE\AMPHETAMINE SULFATE\DEXTROAMPHETAMINE SACCHARATE\DEXTROAMPHETAMINE SULFATE
  4. ALBUTEROL SULFATE. [Concomitant]
     Active Substance: ALBUTEROL SULFATE
  5. PROGESTERONE. [Concomitant]
     Active Substance: PROGESTERONE
  6. VYVANSE [Concomitant]
     Active Substance: LISDEXAMFETAMINE DIMESYLATE
  7. WELLBUTRIN [Concomitant]
     Active Substance: BUPROPION HYDROCHLORIDE
  8. BUTALBITAL COMPOUND [Concomitant]
     Active Substance: ASPIRIN\BUTALBITAL\CAFFEINE
  9. LACRISERT [Concomitant]
     Active Substance: HYDROXYPROPYL CELLULOSE
  10. XYREM [Suspect]
     Active Substance: SODIUM OXYBATE
     Dosage: 3 G, BID
     Route: 048
     Dates: start: 2016, end: 2016
  11. XYREM [Suspect]
     Active Substance: SODIUM OXYBATE
     Indication: INSOMNIA
     Dosage: 1.5 G, BID
     Route: 048
     Dates: start: 201611, end: 201611
  12. TEMAZEPAM. [Concomitant]
     Active Substance: TEMAZEPAM
  13. ZOLPIDEM TARTRATE. [Concomitant]
     Active Substance: ZOLPIDEM TARTRATE
  14. BUSPIRONE HCL [Concomitant]
     Active Substance: BUSPIRONE HYDROCHLORIDE
  15. L-METHYLFOLATE CALCIUM [Concomitant]
     Active Substance: LEVOMEFOLATE CALCIUM
  16. BUPROPION HCL [Concomitant]
     Active Substance: BUPROPION HYDROCHLORIDE
  17. DIAZEPAM. [Concomitant]
     Active Substance: DIAZEPAM

REACTIONS (17)
  - Dry mouth [Unknown]
  - Contraindicated product administered [Unknown]
  - Vomiting [Unknown]
  - Malaise [Unknown]
  - Hallucination [Recovering/Resolving]
  - Nausea [Unknown]
  - Disorientation [Unknown]
  - Dry eye [Unknown]
  - Abdominal pain upper [Unknown]
  - Eye pain [Unknown]
  - Paranoid personality disorder [Unknown]
  - Visual impairment [Unknown]
  - Depression [Unknown]
  - Dizziness [Unknown]
  - Intentional product use issue [Unknown]
  - Migraine [Unknown]
  - Headache [Recovered/Resolved]
